FAERS Safety Report 9683180 (Version 3)
Quarter: 2014Q1

REPORT INFORMATION
  Report Type: Spontaneous
  Country: US (occurrence: US)
  Receive Date: 20131112
  Receipt Date: 20140227
  Transmission Date: 20141002
  Serious: Yes (Hospitalization, Other)
  Sender: FDA-Public Use
  Company Number: US-UCBSA-095075

PATIENT
  Age: 25 Year
  Sex: Male
  Weight: 68 kg

DRUGS (2)
  1. KEPPRA [Suspect]
     Indication: CONVULSION
     Dosage: DOSE-750 TWICE
  2. DILANTIN [Concomitant]
     Indication: CONVULSION
     Dosage: DOSE-150

REACTIONS (2)
  - Convulsion [Recovered/Resolved]
  - Diabetes mellitus [Recovered/Resolved]
